FAERS Safety Report 8586591 (Version 3)
Quarter: 2012Q4

REPORT INFORMATION
  Report Type: 
  Country: JP (occurrence: JP)
  Receive Date: 20120530
  Receipt Date: 20121204
  Transmission Date: 20130627
  Serious: Yes (Hospitalization)
  Sender: FDA-Public Use
  Company Number: JP-ELI_LILLY_AND_COMPANY-JP201205006677

PATIENT
  Age: 75 Year
  Sex: Female

DRUGS (3)
  1. FORTEO [Suspect]
     Dosage: UNK
     Route: 058
     Dates: end: 201205
  2. FORTEO [Suspect]
     Dosage: UNK
     Route: 058
     Dates: end: 201206
  3. FORTEO [Suspect]
     Route: 058

REACTIONS (4)
  - Fall [Unknown]
  - Decreased appetite [Unknown]
  - Ageusia [Unknown]
  - Injection site induration [Unknown]
